FAERS Safety Report 7465407-7 (Version None)
Quarter: 2011Q2

REPORT INFORMATION
  Report Type: 
  Country: None (occurrence: None)
  Receive Date: 20110509
  Receipt Date: 20100825
  Transmission Date: 20111010
  Serious: No
  Sender: FDA-Public Use
  Company Number: US-BAUSCH-2010BL004792

PATIENT
  Sex: Female

DRUGS (1)
  1. LOTEMAX [Suspect]
     Indication: CHEMICAL INJURY
     Route: 047
     Dates: start: 20100801

REACTIONS (2)
  - CORNEAL ABRASION [None]
  - VISUAL ACUITY REDUCED [None]
